FAERS Safety Report 4463334-0 (Version None)
Quarter: 2004Q3

REPORT INFORMATION
  Report Type: 
  Country: None (occurrence: None)
  Receive Date: 20040928
  Receipt Date: 20040920
  Transmission Date: 20050211
  Serious: Yes (Other)
  Sender: FDA-Public Use
  Company Number: HQWYE119220SEP04

PATIENT
  Sex: Female

DRUGS (4)
  1. EFFEXOR XR [Suspect]
     Indication: ANXIETY DISORDER
     Dosage: SEE IMAGE
  2. EFFEXOR XR [Suspect]
     Indication: DEPRESSION
     Dosage: SEE IMAGE
  3. NEURONTIN [Suspect]
     Indication: NEURALGIA
     Dosage: SEE IMAGE
     Dates: start: 20040909, end: 20040915
  4. NEURONTIN [Suspect]
     Indication: NEURALGIA
     Dosage: SEE IMAGE
     Dates: start: 20040916

REACTIONS (4)
  - DRUG INTERACTION [None]
  - PANIC REACTION [None]
  - SUICIDAL IDEATION [None]
  - THINKING ABNORMAL [None]
